FAERS Safety Report 8071937-X (Version None)
Quarter: 2012Q1

REPORT INFORMATION
  Report Type: 
  Country: None (occurrence: None)
  Receive Date: 20120126
  Receipt Date: 20120123
  Transmission Date: 20120608
  Serious: Yes (Other)
  Sender: FDA-Public Use
  Company Number: DE-SHIRE-SPV1-2012-00079

PATIENT
  Age: 45 Year
  Sex: Male

DRUGS (2)
  1. AZATHIOPRINE [Concomitant]
     Indication: PRODUCT USED FOR UNKNOWN INDICATION
     Dosage: 2.5 MG/KG, UNKNOWN
     Route: 065
  2. MESALAMINE [Suspect]
     Indication: PRODUCT USED FOR UNKNOWN INDICATION
     Dosage: 1200 MG, 2X/DAY:BID
     Route: 048

REACTIONS (1)
  - RECTAL CANCER [None]
